FAERS Safety Report 15345967 (Version 1)
Quarter: 2018Q3

REPORT INFORMATION
  Report Type: Spontaneous
  Country: US (occurrence: US)
  Receive Date: 20180904
  Receipt Date: 20180904
  Transmission Date: 20181010
  Serious: No
  Sender: FDA-Public Use
  Company Number: US-HORIZON-KRY-0264-2018

PATIENT
  Age: 59 Year
  Sex: Male

DRUGS (1)
  1. KRYSTEXXA [Suspect]
     Active Substance: PEGLOTICASE
     Indication: GOUT
     Dosage: 8 MG INFUSION Q 2 WEEKS
     Route: 042
     Dates: start: 20180717

REACTIONS (2)
  - Therapeutic response decreased [Unknown]
  - Rash [Unknown]
